FAERS Safety Report 17270464 (Version 3)
Quarter: 2020Q1

REPORT INFORMATION
  Report Type: Spontaneous
  Country: US (occurrence: US)
  Receive Date: 20200114
  Receipt Date: 20200317
  Transmission Date: 20200409
  Serious: Yes (Hospitalization)
  Sender: FDA-Public Use
  Company Number: US-VIFOR (INTERNATIONAL) INC.-VIT-2020-00248

PATIENT
  Age: 65 Year
  Sex: Male

DRUGS (2)
  1. VELTASSA [Suspect]
     Active Substance: PATIROMER
     Indication: HYPERKALAEMIA
     Route: 048
  2. VELTASSA [Suspect]
     Active Substance: PATIROMER
     Route: 048
     Dates: start: 20200108

REACTIONS (5)
  - Product dose omission [Unknown]
  - Blood potassium increased [Unknown]
  - Diarrhoea [Unknown]
  - Constipation [Unknown]
  - Pathogen resistance [Unknown]

NARRATIVE: CASE EVENT DATE: 201912
